FAERS Safety Report 24962998 (Version 3)
Quarter: 2025Q3

REPORT INFORMATION
  Report Type: Spontaneous
  Country: EU (occurrence: EU)
  Receive Date: 20250213
  Receipt Date: 20250810
  Transmission Date: 20251020
  Serious: Yes (Hospitalization, Other)
  Sender: ALEXION PHARMACEUTICALS
  Company Number: EU-SA-2024SA340339

PATIENT
  Age: 2 Month
  Sex: Male
  Weight: 6 kg

DRUGS (6)
  1. NIRSEVIMAB [Suspect]
     Active Substance: NIRSEVIMAB
     Route: 065
     Dates: start: 20240920, end: 20240920
  2. PNEUMOCOCCAL VACCINE, POLYVALENT 23 [Concomitant]
     Active Substance: PNEUMOCOCCAL VACCINE, POLYVALENT 23
     Indication: Immunisation
     Route: 065
  3. Bcg [Concomitant]
     Indication: Immunisation
  4. DTP HB [Concomitant]
     Indication: Immunisation
  5. ROTAVIRUS VACCINE NOS [Concomitant]
     Active Substance: ROTAVIRUS VACCINE
     Indication: Immunisation
  6. ROTAVIRUS VACCINE NOS [Concomitant]
     Active Substance: ROTAVIRUS VACCINE
     Indication: Immunisation

REACTIONS (16)
  - Treatment failure [Recovering/Resolving]
  - Respiratory syncytial virus bronchiolitis [Recovering/Resolving]
  - Respiratory failure [Recovering/Resolving]
  - Hypoxia [Recovering/Resolving]
  - Wheezing [Recovering/Resolving]
  - Use of accessory respiratory muscles [Recovering/Resolving]
  - Breath sounds abnormal [Recovering/Resolving]
  - Nasal congestion [Recovering/Resolving]
  - Rhonchi [Recovering/Resolving]
  - Increased viscosity of upper respiratory secretion [Recovering/Resolving]
  - Poor feeding infant [Recovering/Resolving]
  - Rales [Recovering/Resolving]
  - Hypersomnia [Recovering/Resolving]
  - Rhinitis [Recovering/Resolving]
  - Condition aggravated [Recovering/Resolving]
  - Asthenia [Recovering/Resolving]

NARRATIVE: CASE EVENT DATE: 20241101
